FAERS Safety Report 22983297 (Version 2)
Quarter: 2025Q2

REPORT INFORMATION
  Report Type: Spontaneous
  Country: US (occurrence: US)
  Receive Date: 20230926
  Receipt Date: 20250428
  Transmission Date: 20250716
  Serious: Yes (Death, Hospitalization, Other)
  Sender: AUROBINDO
  Company Number: US-AUROBINDO-AUR-APL-2023-058537

PATIENT
  Age: 27 Year
  Sex: Male

DRUGS (1)
  1. BUPROPION HYDROCHLORIDE [Suspect]
     Active Substance: BUPROPION HYDROCHLORIDE
     Indication: Product used for unknown indication
     Route: 065

REACTIONS (8)
  - Poisoning [Fatal]
  - Intentional overdose [Unknown]
  - Intentional product misuse [Unknown]
  - Status epilepticus [Unknown]
  - Cardiac arrest [Unknown]
  - Renal injury [Unknown]
  - Ventricular fibrillation [Unknown]
  - Hypotension [Unknown]
